FAERS Safety Report 16872968 (Version 2)
Quarter: 2019Q4

REPORT INFORMATION
  Report Type: Spontaneous
  Country: US (occurrence: US)
  Receive Date: 20191001
  Receipt Date: 20191205
  Transmission Date: 20200122
  Serious: Yes (Hospitalization, Other)
  Sender: FDA-Public Use
  Company Number: PHHY2019US225250

PATIENT
  Age: 26 Year
  Sex: Female

DRUGS (1)
  1. DIGOXIN. [Suspect]
     Active Substance: DIGOXIN
     Indication: PRODUCT USED FOR UNKNOWN INDICATION
     Dosage: 250 UNK, UNK (MCG)
     Route: 008

REACTIONS (9)
  - Meningitis chemical [Recovered/Resolved]
  - Status epilepticus [Recovered/Resolved]
  - Accidental exposure to product [Unknown]
  - Maternal exposure during pregnancy [Unknown]
  - Seizure [Recovered/Resolved]
  - Lethargy [Recovered/Resolved]
  - Perinatal depression [Unknown]
  - Agitation [Recovered/Resolved]
  - Encephalopathy [Recovered/Resolved]
